FAERS Safety Report 7180296-6 (Version None)
Quarter: 2010Q4

REPORT INFORMATION
  Report Type: 
  Country: None (occurrence: None)
  Receive Date: 20101221
  Receipt Date: 20101210
  Transmission Date: 20110411
  Serious: Yes (Other)
  Sender: FDA-Public Use
  Company Number: US-PURDUE-USA-2010-0047676

PATIENT
  Sex: Male

DRUGS (2)
  1. OXYCONTIN [Suspect]
     Indication: PAIN MANAGEMENT
     Dosage: 80 MG, UNK
     Dates: start: 20100801
  2. OXYCONTIN [Suspect]
     Dosage: 40 MG, BID

REACTIONS (6)
  - DELUSION [None]
  - DIZZINESS [None]
  - HYPERHIDROSIS [None]
  - NERVOUSNESS [None]
  - PRODUCT FORMULATION ISSUE [None]
  - PSYCHOTIC DISORDER [None]
